FAERS Safety Report 6889307-6 (Version None)
Quarter: 2010Q3

REPORT INFORMATION
  Report Type: 
  Country: None (occurrence: None)
  Receive Date: 20100730
  Receipt Date: 20080124
  Transmission Date: 20110219
  Serious: No
  Sender: FDA-Public Use
  Company Number: US-PFIZER INC-2008008054

PATIENT
  Age: 81 Year
  Sex: Female
  Weight: 64.86 kg

DRUGS (4)
  1. LIPITOR [Suspect]
     Indication: BLOOD CHOLESTEROL INCREASED
  2. VALSARTAN [Concomitant]
     Indication: HYPERTENSION
     Dates: end: 20070101
  3. LISINOPRIL [Concomitant]
     Indication: HYPERTENSION
     Dates: start: 20070101
  4. SYNTHROID [Concomitant]

REACTIONS (1)
  - MUSCLE SPASMS [None]
